FAERS Safety Report 9366381 (Version 1)
Quarter: 2013Q2

REPORT INFORMATION
  Report Type: Spontaneous
  Country: US (occurrence: US)
  Receive Date: 20130625
  Receipt Date: 20130625
  Transmission Date: 20140414
  Serious: No
  Sender: FDA-Public Use
  Company Number: US-GLAXOSMITHKLINE-A1017680A

PATIENT
  Age: 66 Year
  Sex: Female

DRUGS (9)
  1. VERAMYST [Suspect]
     Indication: COUGH
     Dosage: 2SPR TWICE PER DAY
     Route: 045
     Dates: start: 20130206
  2. CELEBREX [Concomitant]
  3. SIMVASTATIN [Concomitant]
  4. DEXILANT [Concomitant]
     Indication: GASTROOESOPHAGEAL REFLUX DISEASE
  5. TRAMADOL [Concomitant]
  6. OXYBUTYNIN [Concomitant]
  7. VALSARTAN [Concomitant]
  8. MULTI VITAMIN [Concomitant]
  9. CALCIUM [Concomitant]

REACTIONS (3)
  - Drug ineffective [Unknown]
  - Upper-airway cough syndrome [Unknown]
  - Product quality issue [Unknown]
